FAERS Safety Report 22016597 (Version 4)
Quarter: 2023Q2

REPORT INFORMATION
  Report Type: Spontaneous
  Country: US (occurrence: US)
  Receive Date: 20230221
  Receipt Date: 20230405
  Transmission Date: 20230721
  Serious: No
  Sender: FDA-Public Use
  Company Number: US-PFIZER INC-PV202300030943

PATIENT
  Age: 11 Month
  Sex: Male
  Weight: 9.07 kg

DRUGS (1)
  1. GENOTROPIN [Suspect]
     Active Substance: SOMATROPIN
     Indication: Adrenal insufficiency
     Dosage: 0.4 MG

REACTIONS (3)
  - Device leakage [Unknown]
  - Device breakage [Unknown]
  - Off label use [Unknown]
